FAERS Safety Report 5219072-X (Version None)
Quarter: 2007Q1

REPORT INFORMATION
  Report Type: 
  Country: None (occurrence: None)
  Receive Date: 20070124
  Receipt Date: 20070124
  Transmission Date: 20070707
  Serious: Yes (Disabling)
  Sender: FDA-Public Use
  Company Number: None

PATIENT

DRUGS (1)
  1. AVASTIN [Suspect]
     Indication: MACULAR DEGENERATION
     Dosage: 2.5 MG
     Dates: start: 20060111, end: 20060118

REACTIONS (3)
  - ENDOPHTHALMITIS [None]
  - INFLAMMATION [None]
  - IRITIS [None]
